FAERS Safety Report 16101443 (Version 1)
Quarter: 2019Q2

REPORT INFORMATION
  Report Type: Spontaneous
  Country: US (occurrence: US)
  Receive Date: 20190321
  Receipt Date: 20190321
  Transmission Date: 20190711
  Serious: Yes (Hospitalization, Other)
  Sender: FDA-Public Use
  Company Number: None

PATIENT
  Age: 21 Year
  Sex: Male
  Weight: 83.25 kg

DRUGS (2)
  1. VYVANSE [Suspect]
     Active Substance: LISDEXAMFETAMINE DIMESYLATE
     Indication: ATTENTION DEFICIT/HYPERACTIVITY DISORDER
     Dosage: ?          QUANTITY:1 CAPSULE(S);?
     Route: 048
     Dates: start: 20140325, end: 20181214
  2. OLANZAPINA [Concomitant]
     Active Substance: OLANZAPINE

REACTIONS (3)
  - Hallucination [None]
  - Suicidal ideation [None]
  - Psychotic disorder [None]

NARRATIVE: CASE EVENT DATE: 20190304
